FAERS Safety Report 10469400 (Version 1)
Quarter: 2014Q3

REPORT INFORMATION
  Report Type: Spontaneous
  Country: US (occurrence: None)
  Receive Date: 20140922
  Receipt Date: 20140922
  Transmission Date: 20150326
  Serious: No
  Sender: FDA-Public Use
  Company Number: None

PATIENT
  Age: 61 Year
  Sex: Female
  Weight: 94.35 kg

DRUGS (2)
  1. DULOXETINE [Suspect]
     Active Substance: DULOXETINE
     Indication: BACK PAIN
     Dosage: 1 ONCE DAILY TAKEN MY MOUTH
     Route: 048
     Dates: start: 20140901, end: 20140919
  2. DULOXETINE [Suspect]
     Active Substance: DULOXETINE
     Indication: DEPRESSION
     Dosage: 1 ONCE DAILY TAKEN MY MOUTH
     Route: 048
     Dates: start: 20140901, end: 20140919

REACTIONS (8)
  - Irritability [None]
  - Product substitution issue [None]
  - Confusional state [None]
  - Depression [None]
  - Suicidal ideation [None]
  - Cold sweat [None]
  - Tremor [None]
  - Headache [None]

NARRATIVE: CASE EVENT DATE: 20140901
